FAERS Safety Report 7457001-9 (Version None)
Quarter: 2011Q2

REPORT INFORMATION
  Report Type: 
  Country: None (occurrence: None)
  Receive Date: 20110504
  Receipt Date: 20110419
  Transmission Date: 20111010
  Serious: Yes (Hospitalization)
  Sender: FDA-Public Use
  Company Number: GB-JNJFOC-20110408425

PATIENT
  Sex: Female
  Weight: 60 kg

DRUGS (7)
  1. REMICADE [Suspect]
     Indication: RHEUMATOID ARTHRITIS
     Route: 042
  2. METFORMIN HYDROCHLORIDE [Concomitant]
  3. HUMALOG [Concomitant]
     Indication: BLOOD GLUCOSE
  4. PREDNISOLONE [Concomitant]
  5. CALCICHEW D3 FORTE [Concomitant]
  6. METHOTREXATE [Concomitant]
  7. ASPIRIN [Concomitant]

REACTIONS (3)
  - CONVULSION [None]
  - ENCEPHALITIS VIRAL [None]
  - CONFUSIONAL STATE [None]
